FAERS Safety Report 14079025 (Version 1)
Quarter: 2017Q4

REPORT INFORMATION
  Report Type: Spontaneous
  Country: US (occurrence: US)
  Receive Date: 20171012
  Receipt Date: 20171012
  Transmission Date: 20180321
  Serious: Yes (Disabling, Other)
  Sender: FDA-Public Use
  Company Number: US-WEST-WARD PHARMACEUTICALS CORP.-US-H14001-17-03762

PATIENT
  Sex: Male

DRUGS (10)
  1. HYDROMORPHINE [Suspect]
     Active Substance: HYDROMORPHONE
     Indication: PAIN
     Route: 048
  2. HYDROCODONE [Suspect]
     Active Substance: HYDROCODONE
     Indication: PAIN
     Route: 048
  3. BUPIVACAINE. [Concomitant]
     Active Substance: BUPIVACAINE
     Indication: PAIN
     Route: 037
  4. MORPHINE [Suspect]
     Active Substance: MORPHINE
     Route: 037
     Dates: start: 2012, end: 20121129
  5. OXYCODONE [Suspect]
     Active Substance: OXYCODONE
     Indication: PAIN
     Route: 048
  6. METHADONE [Concomitant]
     Active Substance: METHADONE HYDROCHLORIDE
     Route: 065
     Dates: start: 20121129, end: 20130411
  7. METHADONE [Concomitant]
     Active Substance: METHADONE HYDROCHLORIDE
     Indication: PAIN
     Route: 065
     Dates: start: 2012
  8. METHADONE [Concomitant]
     Active Substance: METHADONE HYDROCHLORIDE
     Route: 065
     Dates: start: 2012
  9. MORPHINE [Suspect]
     Active Substance: MORPHINE
     Route: 037
     Dates: start: 2006
  10. MORPHINE [Suspect]
     Active Substance: MORPHINE
     Indication: PAIN
     Route: 037
     Dates: start: 2004

REACTIONS (10)
  - Hypoxia [Unknown]
  - Agitation [Unknown]
  - Anal incontinence [Unknown]
  - Pain [Recovered/Resolved]
  - Dysstasia [Recovering/Resolving]
  - Delirium [Unknown]
  - Urinary incontinence [Unknown]
  - Dementia [Recovered/Resolved]
  - Gait disturbance [Recovering/Resolving]
  - Confusional state [Unknown]

NARRATIVE: CASE EVENT DATE: 2011
